FAERS Safety Report 11266264 (Version 1)
Quarter: 2015Q3

REPORT INFORMATION
  Report Type: Spontaneous
  Country: US (occurrence: US)
  Receive Date: 20150713
  Receipt Date: 20150713
  Transmission Date: 20151125
  Serious: Yes (Disabling)
  Sender: FDA-Public Use
  Company Number: US-MPIJNJ-2012-09167

PATIENT
  Sex: Female
  Weight: 66.21 kg

DRUGS (2)
  1. VELCADE [Suspect]
     Active Substance: BORTEZOMIB
     Indication: NON-HODGKIN^S LYMPHOMA
  2. VELCADE [Suspect]
     Active Substance: BORTEZOMIB
     Indication: PLASMA CELL MYELOMA
     Dosage: 0.3 MG/M2, CYCLIC
     Route: 042
     Dates: start: 20121108, end: 20121121

REACTIONS (1)
  - Haemoglobin decreased [Not Recovered/Not Resolved]
